FAERS Safety Report 11857718 (Version 1)
Quarter: 2015Q4

REPORT INFORMATION
  Report Type: Spontaneous
  Country: US (occurrence: None)
  Receive Date: 20151221
  Receipt Date: 20151221
  Transmission Date: 20160305
  Serious: No
  Sender: FDA-Public Use
  Company Number: None

PATIENT
  Age: 48 Year
  Sex: Male

DRUGS (1)
  1. XELJANZ [Suspect]
     Active Substance: TOFACITINIB CITRATE
     Indication: RHEUMATOID ARTHRITIS
     Dosage: 1 TABLET 5 MG
     Route: 048
     Dates: start: 20150910

REACTIONS (3)
  - Pain [None]
  - Swelling [None]
  - Rheumatoid arthritis [None]

NARRATIVE: CASE EVENT DATE: 20151218
